FAERS Safety Report 25079111 (Version 1)
Quarter: 2025Q1

REPORT INFORMATION
  Report Type: Spontaneous
  Country: CN (occurrence: CN)
  Receive Date: 20250314
  Receipt Date: 20250314
  Transmission Date: 20250408
  Serious: Yes (Other)
  Sender: SANOFI AVENTIS
  Company Number: CN-SA-2025SA073956

PATIENT
  Age: 70 Year
  Sex: Male
  Weight: 55 kg

DRUGS (3)
  1. OXALIPLATIN [Suspect]
     Active Substance: OXALIPLATIN
     Indication: Gastric cancer
     Dosage: 220 MG, QD
     Route: 041
     Dates: start: 20241217, end: 20250107
  2. SINTILIMAB [Suspect]
     Active Substance: SINTILIMAB
     Indication: Gastric cancer
     Dosage: 200 MG, QD
     Route: 041
     Dates: start: 20241217, end: 20250107
  3. GIMERACIL\OTERACIL\TEGAFUR [Suspect]
     Active Substance: GIMERACIL\OTERACIL POTASSIUM\TEGAFUR
     Indication: Gastric cancer
     Dosage: 60 MG, Q3W
     Route: 048
     Dates: start: 20241217, end: 20250107

REACTIONS (7)
  - Sjogren^s syndrome [Recovering/Resolving]
  - Laryngeal discomfort [Recovering/Resolving]
  - Neck pain [Recovering/Resolving]
  - Chest pain [Recovering/Resolving]
  - Stomatitis [Recovering/Resolving]
  - Dizziness [Recovering/Resolving]
  - Nausea [Recovering/Resolving]

NARRATIVE: CASE EVENT DATE: 20250228
